FAERS Safety Report 22142396 (Version 1)
Quarter: 2023Q1

REPORT INFORMATION
  Report Type: Report from Study
  Country: US (occurrence: US)
  Receive Date: 20230327
  Receipt Date: 20230327
  Transmission Date: 20230418
  Serious: Yes (Hospitalization)
  Sender: FDA-Public Use
  Company Number: US-ALNYLAM PHARMACEUTICALS, INC.-ALN-2023-001254

PATIENT

DRUGS (1)
  1. GIVLAARI [Suspect]
     Active Substance: GIVOSIRAN SODIUM
     Indication: Porphyria acute
     Dosage: UNK
     Route: 065
     Dates: start: 20201015

REACTIONS (6)
  - Abdominal pain upper [Unknown]
  - Tremor [Unknown]
  - Palpitations [Unknown]
  - Nervousness [Unknown]
  - Liver iron concentration increased [Unknown]
  - Drug ineffective [Unknown]
